FAERS Safety Report 7164819-9 (Version None)
Quarter: 2010Q4

REPORT INFORMATION
  Report Type: 
  Country: None (occurrence: None)
  Receive Date: 20101215
  Receipt Date: 20101202
  Transmission Date: 20110411
  Serious: Yes (Hospitalization)
  Sender: FDA-Public Use
  Company Number: ES-PFIZER INC-2010142002

PATIENT
  Age: 67 Year
  Sex: Male
  Weight: 79.7 kg

DRUGS (7)
  1. GEMTUZUMAB OZOGAMICIN [Suspect]
     Dosage: 5 MG, SINGLE
     Dates: start: 20100918, end: 20100918
  2. CYTARABINE [Suspect]
     Indication: ACUTE MYELOID LEUKAEMIA
     Dosage: 1920 MG, 1X/DAY
     Route: 042
     Dates: start: 20101019, end: 20101024
  3. IDARUBICIN HCL [Suspect]
     Indication: ACUTE MYELOID LEUKAEMIA
     Dosage: 24 MG, 1X/DAY
     Dates: start: 20100919, end: 20100921
  4. MITOXANTRONE HYDROCHLORIDE [Suspect]
     Indication: ACUTE MYELOID LEUKAEMIA
     Dosage: 23 MG, 1X/DAY
     Route: 042
     Dates: start: 20101022, end: 20101024
  5. OMEPRAZOLE [Concomitant]
     Indication: PROPHYLAXIS
     Dosage: 20 MG, 1X/DAY
     Route: 048
     Dates: start: 20100916
  6. POSACONAZOLE [Concomitant]
     Indication: ANTIFUNGAL PROPHYLAXIS
     Dosage: 600 MG/DAY
     Route: 048
     Dates: start: 20100916
  7. LORAZEPAM [Concomitant]
     Indication: ANXIETY
     Dosage: 1 MG/DAY
     Route: 048
     Dates: start: 20100916

REACTIONS (1)
  - FEBRILE NEUTROPENIA [None]
